FAERS Safety Report 5587164-1 (Version None)
Quarter: 2008Q1

REPORT INFORMATION
  Report Type: 
  Country: None (occurrence: None)
  Receive Date: 20080110
  Receipt Date: 20080107
  Transmission Date: 20080703
  Serious: Yes (Hospitalization)
  Sender: FDA-Public Use
  Company Number: US-JNJFOC-20080101642

PATIENT
  Sex: Female

DRUGS (3)
  1. REMICADE [Suspect]
     Indication: CROHN'S DISEASE
     Route: 042
  2. DILAUDID [Concomitant]
     Indication: PAIN
  3. LOMOTIL [Concomitant]
     Indication: DIARRHOEA

REACTIONS (2)
  - ABDOMINAL ABSCESS [None]
  - FISTULA [None]
